FAERS Safety Report 15717114 (Version 3)
Quarter: 2019Q2

REPORT INFORMATION
  Report Type: Spontaneous
  Country: US (occurrence: US)
  Receive Date: 20181213
  Receipt Date: 20190423
  Transmission Date: 20190711
  Serious: Yes (Hospitalization)
  Sender: FDA-Public Use
  Company Number: US-PFIZER INC-2018509798

PATIENT
  Age: 67 Year
  Sex: Male

DRUGS (2)
  1. CHANTIX [Suspect]
     Active Substance: VARENICLINE TARTRATE
     Dosage: UNK, 1X/DAY
  2. CHANTIX [Suspect]
     Active Substance: VARENICLINE TARTRATE
     Indication: SMOKING CESSATION THERAPY
     Dosage: UNK UNK, 2X/DAY

REACTIONS (6)
  - Pruritus [Not Recovered/Not Resolved]
  - Skin disorder [Unknown]
  - Intentional product misuse [Unknown]
  - Insomnia [Unknown]
  - Urticaria [Unknown]
  - Hypersensitivity [Not Recovered/Not Resolved]
